FAERS Safety Report 25885082 (Version 1)
Quarter: 2025Q4

REPORT INFORMATION
  Report Type: Spontaneous
  Country: JP (occurrence: JP)
  Receive Date: 20251006
  Receipt Date: 20251006
  Transmission Date: 20260117
  Serious: Yes (Other)
  Sender: SANOFI AVENTIS
  Company Number: JP-ASTELLAS-2025-AER-053741

PATIENT
  Age: 80 Year
  Sex: Male

DRUGS (3)
  1. TAMSULOSIN HYDROCHLORIDE [Suspect]
     Active Substance: TAMSULOSIN HYDROCHLORIDE
     Indication: Benign prostatic hyperplasia
     Dosage: UNK UNK, QD (AFTER LUNCH)
     Route: 048
  2. VIBEGRON [Suspect]
     Active Substance: VIBEGRON
     Indication: Reduced bladder capacity
     Dosage: UNK, QD (AFTER LUNCH)
     Route: 048
  3. NAFTOPIDIL [Concomitant]
     Active Substance: NAFTOPIDIL
     Indication: Product used for unknown indication
     Dosage: 25 MG, QD
     Route: 048
     Dates: start: 202509

REACTIONS (13)
  - Cataract [Unknown]
  - Glaucoma [Unknown]
  - Arrhythmia [Unknown]
  - Benign prostatic hyperplasia [Unknown]
  - Dysuria [Unknown]
  - Dizziness postural [Unknown]
  - Gait disturbance [Unknown]
  - Blood pressure decreased [Unknown]
  - Intraocular pressure increased [Unknown]
  - Insomnia [Unknown]
  - Dizziness [Unknown]
  - Heart rate increased [Unknown]
  - Intentional product use issue [Unknown]
